FAERS Safety Report 4734275-6 (Version None)
Quarter: 2005Q3

REPORT INFORMATION
  Report Type: 
  Country: None (occurrence: None)
  Receive Date: 20050729
  Receipt Date: 20050713
  Transmission Date: 20060218
  Serious: Yes (Hospitalization, Other)
  Sender: FDA-Public Use
  Company Number: US_0507120104

PATIENT
  Age: 26 Year
  Sex: Male
  Weight: 109 kg

DRUGS (9)
  1. ZYPREXA [Suspect]
     Indication: DEPRESSION
     Dosage: 20 MG
     Dates: start: 20020301, end: 20031201
  2. PROZAC [Concomitant]
  3. HUMALOG [Concomitant]
  4. ACTOR (PIOGLITAZONE HYDROCHLORIDE) [Concomitant]
  5. EFFEXOR [Concomitant]
  6. TRILEPTAL [Concomitant]
  7. SEROQUEL [Concomitant]
  8. GLUCOPHAGE XR (METFORMIN HYDROCHLORIDE) [Concomitant]
  9. LANTUS [Concomitant]

REACTIONS (4)
  - DIABETES MELLITUS INSULIN-DEPENDENT [None]
  - DIABETIC COMA [None]
  - HYPERTENSION [None]
  - VISION BLURRED [None]
